APPROVED DRUG PRODUCT: CHLORPHENIRAMINE MALEATE
Active Ingredient: CHLORPHENIRAMINE MALEATE
Strength: 4MG
Dosage Form/Route: TABLET;ORAL
Application: A080700 | Product #001
Applicant: SUN PHARMACEUTICAL INDUSTRIES INC
Approved: Approved Prior to Jan 1, 1982 | RLD: No | RS: No | Type: DISCN